FAERS Safety Report 8574458-0 (Version None)
Quarter: 2012Q3

REPORT INFORMATION
  Report Type: 
  Country: None (occurrence: None)
  Receive Date: 20120806
  Receipt Date: 20120427
  Transmission Date: 20120928
  Serious: No
  Sender: FDA-Public Use
  Company Number: US-ABBOTT-12P-163-0930122-00

PATIENT
  Age: 56 Year
  Sex: Female
  Weight: 54.48 kg

DRUGS (4)
  1. KLONOPIN [Concomitant]
     Indication: PRODUCT USED FOR UNKNOWN INDICATION
  2. DEPAKOTE ER [Suspect]
     Dates: start: 20120324, end: 20120401
  3. DEPAKOTE ER [Suspect]
     Indication: ANXIETY
     Route: 048
     Dates: start: 20120403
  4. ZOLOFT [Concomitant]
     Indication: PRODUCT USED FOR UNKNOWN INDICATION

REACTIONS (16)
  - STRESS [None]
  - LETHARGY [None]
  - DERMAL CYST [None]
  - TREMOR [None]
  - FATIGUE [None]
  - SOMNOLENCE [None]
  - DIARRHOEA [None]
  - COORDINATION ABNORMAL [None]
  - DRY MOUTH [None]
  - MYALGIA [None]
  - LIP DRY [None]
  - ANXIETY [None]
  - VISION BLURRED [None]
  - ABDOMINAL PAIN [None]
  - WRONG TECHNIQUE IN DRUG USAGE PROCESS [None]
  - OFF LABEL USE [None]
